FAERS Safety Report 8239981-7 (Version None)
Quarter: 2012Q1

REPORT INFORMATION
  Report Type: 
  Country: None (occurrence: None)
  Receive Date: 20120328
  Receipt Date: 20120323
  Transmission Date: 20120608
  Serious: Yes (Hospitalization, Other)
  Sender: FDA-Public Use
  Company Number: US-JNJFOC-20120304672

PATIENT
  Sex: Male
  Weight: 86.6 kg

DRUGS (10)
  1. AMARYL [Suspect]
     Indication: TYPE 2 DIABETES MELLITUS
     Route: 048
  2. ALLOPURINOL [Concomitant]
     Route: 048
  3. XARELTO [Suspect]
     Indication: ATRIAL FIBRILLATION
     Route: 048
     Dates: start: 20111218, end: 20111228
  4. AMARYL [Suspect]
     Route: 048
  5. LASIX [Concomitant]
     Route: 048
  6. AMIKACIN [Suspect]
     Indication: PREMEDICATION
     Route: 042
  7. CARDIZEM CD [Concomitant]
     Route: 048
  8. JANUVIA [Suspect]
     Route: 048
  9. AVODART [Concomitant]
  10. JANUVIA [Suspect]
     Indication: TYPE 2 DIABETES MELLITUS
     Route: 048

REACTIONS (5)
  - HEPATIC ENZYME INCREASED [None]
  - HYPOGLYCAEMIA [None]
  - HYPERKALAEMIA [None]
  - HAEMATURIA [None]
  - RENAL FAILURE [None]
